FAERS Safety Report 7024098-X (Version None)
Quarter: 2010Q3

REPORT INFORMATION
  Report Type: 
  Country: None (occurrence: None)
  Receive Date: 20100929
  Receipt Date: 20100902
  Transmission Date: 20110219
  Serious: Yes (Death, Hospitalization)
  Sender: FDA-Public Use
  Company Number: US-000088

PATIENT
  Sex: Male

DRUGS (1)
  1. ZENPEP [Suspect]
     Indication: PANCREATITIS
     Dosage: (5 20,000 UNIT CAPSULES WITH EACH MEAL AND 3 CAPSULES WITH SNACKS, ORAL
     Route: 048
     Dates: start: 20100201, end: 20100801

REACTIONS (1)
  - CEREBROVASCULAR ACCIDENT [None]
